FAERS Safety Report 8407318 (Version 5)
Quarter: 2012Q4

REPORT INFORMATION
  Report Type: 
  Country: US (occurrence: US)
  Receive Date: 20120215
  Receipt Date: 20121011
  Transmission Date: 20130627
  Serious: Yes (Hospitalization, Other)
  Sender: FDA-Public Use
  Company Number: US-009507513-1202USA01970

PATIENT

DRUGS (14)
  1. FOSAMAX [Suspect]
     Dosage: 35 mg, qw
     Route: 048
     Dates: start: 200008, end: 200601
  2. FOSAMAX D [Suspect]
     Indication: OSTEOPENIA
     Dosage: 70 mg, qw
     Route: 048
     Dates: start: 200602, end: 201002
  3. FOSAMAX D [Suspect]
     Dosage: 70 mg, qw
     Route: 048
     Dates: start: 201005, end: 201005
  4. FOSAMAX [Suspect]
     Indication: OSTEOPENIA
     Dosage: 70 mg, qw
     Route: 048
     Dates: start: 201002, end: 201005
  5. VITAMIN E [Concomitant]
     Dosage: 400 IU, qd
     Route: 048
     Dates: start: 1998
  6. ASCORBIC ACID [Concomitant]
     Dosage: 500 IU, qd
     Route: 048
     Dates: start: 1998
  7. VITA VIM ADULT 50 PLUS [Concomitant]
     Dosage: UNK, qd
     Dates: start: 1980
  8. LIPITOR [Concomitant]
     Indication: HYPERLIPIDAEMIA
     Dosage: 10 mg, qd
     Route: 048
  9. HYDROCHLOROTHIAZIDE (+) LISINOPRIL [Concomitant]
     Indication: HYPERTENSION
     Dosage: 10-12.5
     Route: 048
  10. INDOMETHACIN [Concomitant]
     Indication: PLANTAR FASCIITIS
  11. METHYLPREDNISOLONE [Concomitant]
     Indication: PLANTAR FASCIITIS
  12. PRINZIDE [Concomitant]
     Indication: HYPERTENSION
     Dosage: 20mg-12-5mg
  13. SIMVASTATIN TABLETS, USP [Concomitant]
     Indication: HYPERLIPIDAEMIA
     Dosage: 20 mg, qd
     Route: 048
  14. CALCIUM (UNSPECIFIED) [Concomitant]
     Dosage: 1200 mg, qd
     Dates: start: 2000, end: 201006

REACTIONS (19)
  - Femur fracture [Unknown]
  - Open reduction of fracture [Unknown]
  - Myasthenia gravis [Unknown]
  - Hypoacusis [Not Recovered/Not Resolved]
  - Type 2 diabetes mellitus [Unknown]
  - Adverse event [Unknown]
  - Tinnitus [Not Recovered/Not Resolved]
  - Conjunctivitis [Unknown]
  - Glaucoma [Unknown]
  - Ear disorder [Unknown]
  - Mastoid disorder [Unknown]
  - Muscle strain [Unknown]
  - Osteoarthritis [Unknown]
  - Osteoporosis [Unknown]
  - Urinary tract infection [Unknown]
  - Eyelid ptosis [Unknown]
  - Oedema [Unknown]
  - Muscle strain [Unknown]
  - Rash [Unknown]
